FAERS Safety Report 4905344-2 (Version None)
Quarter: 2006Q1

REPORT INFORMATION
  Report Type: 
  Country: None (occurrence: None)
  Receive Date: 20060207
  Receipt Date: 20060207
  Transmission Date: 20060701
  Serious: Yes (Other)
  Sender: FDA-Public Use
  Company Number: None

PATIENT
  Age: 43 Year
  Sex: Female
  Weight: 68.0396 kg

DRUGS (3)
  1. PAXIL [Suspect]
     Indication: ANXIETY
     Dosage: 40MG   ONCE DAILY  PO
     Route: 048
     Dates: start: 19960301, end: 20051231
  2. PAXIL [Suspect]
     Indication: DEPRESSION
     Dosage: 40MG   ONCE DAILY  PO
     Route: 048
     Dates: start: 19960301, end: 20051231
  3. PAXIL [Suspect]
     Indication: FIBROMYALGIA
     Dosage: 40MG   ONCE DAILY  PO
     Route: 048
     Dates: start: 19960301, end: 20051231

REACTIONS (21)
  - ANGER [None]
  - ANXIETY [None]
  - COORDINATION ABNORMAL [None]
  - CRYING [None]
  - DIARRHOEA [None]
  - DISTURBANCE IN ATTENTION [None]
  - DIZZINESS [None]
  - DYSPEPSIA [None]
  - HEADACHE [None]
  - INFLUENZA LIKE ILLNESS [None]
  - INSOMNIA [None]
  - LETHARGY [None]
  - MOOD SWINGS [None]
  - MUSCLE SPASMS [None]
  - NAUSEA [None]
  - NIGHTMARE [None]
  - PSYCHOMOTOR HYPERACTIVITY [None]
  - SPEECH DISORDER [None]
  - TINNITUS [None]
  - VERTIGO [None]
  - VISION BLURRED [None]
